FAERS Safety Report 7730349-6 (Version None)
Quarter: 2011Q3

REPORT INFORMATION
  Report Type: 
  Country: None (occurrence: None)
  Receive Date: 20110906
  Receipt Date: 20110517
  Transmission Date: 20111222
  Serious: No
  Sender: FDA-Public Use
  Company Number: US-GLAXOSMITHKLINE-A0927607A

PATIENT
  Age: 29 Year
  Sex: Female

DRUGS (3)
  1. LAMICTAL [Suspect]
     Indication: BIPOLAR II DISORDER
     Dosage: 200MG PER DAY
     Route: 048
     Dates: start: 20060101
  2. ORTHO TRI-CYCLEN LO [Concomitant]
  3. CYMBALTA [Concomitant]

REACTIONS (2)
  - SWELLING FACE [None]
  - URTICARIA [None]
